FAERS Safety Report 7244427-1 (Version None)
Quarter: 2011Q1

REPORT INFORMATION
  Report Type: 
  Country: None (occurrence: None)
  Receive Date: 20110125
  Receipt Date: 20110114
  Transmission Date: 20110831
  Serious: Yes (Hospitalization)
  Sender: FDA-Public Use
  Company Number: PHHY2011FR03671

PATIENT
  Sex: Female
  Weight: 66 kg

DRUGS (4)
  1. TASIGNA [Suspect]
     Indication: CHRONIC MYELOID LEUKAEMIA
     Dosage: 400 MG, BID
     Route: 048
     Dates: start: 20090401
  2. HYPERIUM [Concomitant]
     Indication: HYPERTENSION
     Dosage: UNK,DAILY
     Route: 048
     Dates: start: 19900101
  3. TRIATEC [Concomitant]
     Indication: HYPERTENSION
     Dosage: UNK,DAILY
     Route: 048
     Dates: start: 19900101
  4. KARDEGIC [Concomitant]
     Indication: TRANSIENT ISCHAEMIC ATTACK
     Dosage: 250 MG, DAILY
     Route: 048
     Dates: start: 20100101

REACTIONS (9)
  - GAIT DISTURBANCE [None]
  - BALANCE DISORDER [None]
  - ARTERIOSCLEROSIS [None]
  - FALL [None]
  - HYPERCHOLESTEROLAEMIA [None]
  - WALLENBERG SYNDROME [None]
  - SENSORY LOSS [None]
  - SUPRAVENTRICULAR EXTRASYSTOLES [None]
  - DIZZINESS [None]
